FAERS Safety Report 8672968 (Version 5)
Quarter: 2013Q3

REPORT INFORMATION
  Report Type: Report from Study
  Country: FR (occurrence: FR)
  Receive Date: 20120719
  Receipt Date: 20130816
  Transmission Date: 20140515
  Serious: Yes (Hospitalization)
  Sender: FDA-Public Use
  Company Number: FR-ROCHE-1084720

PATIENT
  Age: 64 Year
  Sex: Male
  Weight: 102 kg

DRUGS (37)
  1. RITUXIMAB [Suspect]
     Indication: B-CELL LYMPHOMA
     Dosage: DATE OF LAST DOSE PRIOR TO SAE 18/JUN/2012
     Route: 042
     Dates: start: 20120321
  2. RHUPH20/RITUXIMAB [Suspect]
     Indication: B-CELL LYMPHOMA
     Dosage: LAST DOSE 18/JUN/2012
     Route: 058
     Dates: start: 20120420
  3. RHUPH20/RITUXIMAB [Suspect]
     Dosage: LAST DOSE PRIOR TO SAE  18 JUN 2012.
     Route: 058
     Dates: start: 20120618, end: 20120713
  4. RHUPH20/RITUXIMAB [Suspect]
     Dosage: LAST DOSE PRIOR TO SAE  18 JUN 2012.
     Route: 058
     Dates: start: 20120518
  5. BENDAMUSTINE [Suspect]
     Indication: B-CELL LYMPHOMA
     Dosage: DATE OF LAST DOSE PRIOR TO SAE 19/JUN/2012
     Route: 042
     Dates: start: 20120321
  6. BENDAMUSTINE [Suspect]
     Dosage: LAST DOSE: 19 JUNE 2012
     Route: 042
     Dates: start: 20120618, end: 20120713
  7. BENDAMUSTINE [Suspect]
     Route: 042
     Dates: start: 20120322
  8. BENDAMUSTINE [Suspect]
     Route: 042
     Dates: start: 20120420
  9. BENDAMUSTINE [Suspect]
     Route: 042
     Dates: start: 20120421
  10. BENDAMUSTINE [Suspect]
     Route: 042
     Dates: start: 20120518
  11. BENDAMUSTINE [Suspect]
     Route: 042
     Dates: start: 20120519
  12. BENDAMUSTINE [Suspect]
     Route: 042
     Dates: start: 20120618
  13. BENDAMUSTINE [Suspect]
     Route: 042
     Dates: start: 20120619
  14. ESCITALOPRAM OXALATE [Concomitant]
     Indication: PRODUCT USED FOR UNKNOWN INDICATION
  15. FUROSEMIDE [Concomitant]
     Indication: PRODUCT USED FOR UNKNOWN INDICATION
  16. ACEBUTOLOL [Concomitant]
     Indication: HYPERTENSION
     Route: 065
     Dates: start: 19990101
  17. ARIXTRA [Concomitant]
     Indication: THROMBOSIS
     Route: 065
     Dates: start: 20120326, end: 20120403
  18. ARIXTRA [Concomitant]
     Indication: PULMONARY EMBOLISM
  19. SOLU-MEDROL [Concomitant]
     Indication: BRONCHOSPASM
     Route: 065
     Dates: start: 20120321, end: 20120321
  20. COAPROVEL [Concomitant]
     Indication: HYPERTENSION
     Route: 065
     Dates: start: 19990101
  21. BETNEVAL [Concomitant]
     Indication: SKIN LESION
     Route: 065
     Dates: start: 20120321, end: 20120903
  22. BETNEVAL [Concomitant]
     Route: 065
     Dates: start: 20120626, end: 20120713
  23. BETNEVAL [Concomitant]
     Dosage: CREAM PER DAY
     Route: 065
     Dates: end: 20120903
  24. FORLAX (AUSTRIA) [Concomitant]
     Indication: CONSTIPATION
     Route: 065
     Dates: start: 20120321, end: 20120614
  25. CETIRIZINE [Concomitant]
     Indication: ERYTHEMA
     Route: 065
     Dates: start: 20120321, end: 20120327
  26. CETIRIZINE [Concomitant]
     Route: 065
     Dates: start: 20120626, end: 20120713
  27. FRAGMINE [Concomitant]
     Indication: ANTICOAGULANT THERAPY
     Dosage: 18000 UI PER DAY
     Route: 065
     Dates: start: 20120327, end: 20120418
  28. ZOPICLONE [Concomitant]
     Indication: INSOMNIA
     Route: 065
     Dates: start: 20120419, end: 20120519
  29. LASILIX [Concomitant]
     Indication: OEDEMA
     Route: 065
     Dates: start: 20120419, end: 20120619
  30. DIFFU K [Concomitant]
     Indication: HYPOKALAEMIA
     Dosage: 2 GELLULES
     Route: 065
     Dates: start: 20120419, end: 20120619
  31. LOVENOX [Concomitant]
     Dosage: 1000 UI
     Route: 065
     Dates: start: 20120419
  32. MICROLAX (AUSTRALIA) [Concomitant]
     Indication: CONSTIPATION
     Route: 065
     Dates: start: 20120518, end: 20120614
  33. DOLIPRANE [Concomitant]
     Route: 065
     Dates: start: 20120321, end: 20120321
  34. POLARAMINE [Concomitant]
     Dosage: % MG/ML
     Route: 065
     Dates: start: 20120321, end: 20120321
  35. POLARAMINE [Concomitant]
     Route: 065
     Dates: end: 20120618
  36. ONDANSETRON [Concomitant]
     Dosage: 8MG/4ML
     Route: 065
     Dates: start: 20120518, end: 20120519
  37. PARACETAMOL [Concomitant]
     Route: 065
     Dates: start: 20120321, end: 20120618

REACTIONS (3)
  - Toxic skin eruption [Recovered/Resolved]
  - Skin toxicity [Not Recovered/Not Resolved]
  - Drug reaction with eosinophilia and systemic symptoms [Not Recovered/Not Resolved]
